FAERS Safety Report 6340324-4 (Version None)
Quarter: 2009Q3

REPORT INFORMATION
  Report Type: 
  Country: None (occurrence: None)
  Receive Date: 20090904
  Receipt Date: 20070605
  Transmission Date: 20100115
  Serious: Yes (Other)
  Sender: FDA-Public Use
  Company Number: US-ASTRAZENECA-2006UW21991

PATIENT
  Age: 57 Year
  Sex: Male
  Weight: 90.3 kg

DRUGS (20)
  1. SEROQUEL [Suspect]
     Indication: AFFECTIVE DISORDER
     Dosage: 50 MG TO 500 MG
     Route: 048
     Dates: start: 20040611
  2. SEROQUEL [Suspect]
     Indication: SCHIZOPHRENIA
     Dosage: 50 MG TO 500 MG
     Route: 048
     Dates: start: 20040611
  3. SEROQUEL [Suspect]
     Indication: SLEEP DISORDER
     Dosage: 50 MG TO 500 MG
     Route: 048
     Dates: start: 20040611
  4. SEROQUEL [Suspect]
     Route: 048
     Dates: start: 20050101
  5. SEROQUEL [Suspect]
     Route: 048
     Dates: start: 20050101
  6. SEROQUEL [Suspect]
     Route: 048
     Dates: start: 20050101
  7. TRAZODONE [Concomitant]
     Indication: SLEEP DISORDER
     Dosage: 50 MG TO 150 MG
     Route: 048
     Dates: start: 20020101
  8. GEODON [Concomitant]
     Dosage: 40 MG TO 160 MG
     Dates: start: 20021219
  9. EFFEXOR XR [Concomitant]
     Dosage: 150 MG TO 375 MG
     Dates: start: 20010112
  10. LEXAPRO [Concomitant]
     Dosage: 10 MG TO 30 MG
     Dates: start: 20021219
  11. CLONAZEPAM [Concomitant]
     Dosage: 0.5 MG TO 1 MG
     Dates: start: 20010924
  12. AMBIEN [Concomitant]
     Indication: SLEEP DISORDER
     Dosage: 5 MG TO 10 MG
     Dates: start: 20010924
  13. NEURONTIN [Concomitant]
     Indication: ANXIETY
     Dosage: 300 MG TO 900 MG
     Route: 048
     Dates: start: 20001124
  14. NEURONTIN [Concomitant]
     Indication: CONVULSION
     Dosage: 300 MG TO 900 MG
     Route: 048
     Dates: start: 20001124
  15. LAMICTAL [Concomitant]
     Indication: CONVULSION
     Dosage: 25 MG TO 200 MG
     Route: 048
     Dates: start: 20040611
  16. TRILEPTAL [Concomitant]
     Indication: CONVULSION
     Dosage: 150 MG TO 300 MG
     Route: 048
     Dates: start: 20050303
  17. ALLOPURINOL [Concomitant]
     Indication: GOUT
     Route: 048
     Dates: start: 19991003
  18. NORVASC [Concomitant]
     Indication: HYPERTENSION
     Route: 048
     Dates: start: 19961015
  19. ZOLOFT [Concomitant]
     Indication: BIPOLAR DISORDER
     Route: 048
     Dates: start: 19991003
  20. ZOLOFT [Concomitant]
     Indication: DEPRESSION
     Route: 048
     Dates: start: 19991003

REACTIONS (3)
  - DIABETES MELLITUS [None]
  - DIABETIC NEUROPATHY [None]
  - TYPE 2 DIABETES MELLITUS [None]
